FAERS Safety Report 11079767 (Version 1)
Quarter: 2015Q2

REPORT INFORMATION
  Report Type: Report from Study
  Country: GB (occurrence: GB)
  Receive Date: 20150430
  Receipt Date: 20150430
  Transmission Date: 20150821
  Serious: Yes (Other)
  Sender: FDA-Public Use
  Company Number: PHFR2015GB003381

PATIENT
  Age: 39 Year
  Sex: Male

DRUGS (1)
  1. GILENYA [Suspect]
     Active Substance: FINGOLIMOD HYDROCHLORIDE
     Indication: MULTIPLE SCLEROSIS
     Dosage: UNK
     Route: 065
     Dates: start: 20150420

REACTIONS (3)
  - Electrocardiogram T wave inversion [Recovered/Resolved]
  - Electrocardiogram PR shortened [Unknown]
  - ECG P wave inverted [Unknown]

NARRATIVE: CASE EVENT DATE: 20150420
